FAERS Safety Report 18961963 (Version 1)
Quarter: 2021Q1

REPORT INFORMATION
  Report Type: Spontaneous
  Country: DE (occurrence: DE)
  Receive Date: 20210303
  Receipt Date: 20210303
  Transmission Date: 20210420
  Serious: Yes (Other)
  Sender: FDA-Public Use
  Company Number: NVSC2020DE203014

PATIENT
  Sex: Male

DRUGS (1)
  1. LOSARTAN HEXAL 100 MG FILMTABLETTEN [Suspect]
     Active Substance: LOSARTAN POTASSIUM
     Indication: PRODUCT USED FOR UNKNOWN INDICATION
     Dosage: 100 MG
     Route: 065
     Dates: start: 201502, end: 2019

REACTIONS (8)
  - Fear [Unknown]
  - Product contamination [Unknown]
  - Restlessness [Unknown]
  - Quality of life decreased [Unknown]
  - Emotional distress [Unknown]
  - Dizziness [Unknown]
  - Suicide threat [Unknown]
  - Gastrointestinal disorder [Unknown]
